FAERS Safety Report 24043818 (Version 1)
Quarter: 2024Q3

REPORT INFORMATION
  Report Type: Spontaneous
  Country: PT (occurrence: PT)
  Receive Date: 20240703
  Receipt Date: 20240703
  Transmission Date: 20241017
  Serious: Yes (Death)
  Sender: Haleon PLC
  Company Number: PT-HALEON-2184663

PATIENT
  Sex: Male

DRUGS (1)
  1. VOLTAREN [Suspect]
     Active Substance: DICLOFENAC SODIUM
     Indication: Lower limb fracture

REACTIONS (2)
  - Renal failure [Fatal]
  - Off label use [Unknown]
